FAERS Safety Report 22042363 (Version 5)
Quarter: 2023Q2

REPORT INFORMATION
  Report Type: Report from Study
  Country: US (occurrence: US)
  Receive Date: 20230227
  Receipt Date: 20230405
  Transmission Date: 20230721
  Serious: Yes (Hospitalization)
  Sender: FDA-Public Use
  Company Number: US-ABBVIE-4320043

PATIENT
  Age: 63 Year
  Sex: Male

DRUGS (1)
  1. RINVOQ [Suspect]
     Active Substance: UPADACITINIB
     Indication: Product used for unknown indication
     Route: 048
     Dates: start: 20220914

REACTIONS (12)
  - Loss of consciousness [Not Recovered/Not Resolved]
  - Psoriatic arthropathy [Not Recovered/Not Resolved]
  - Pharyngeal swelling [Unknown]
  - Feeling abnormal [Unknown]
  - Swollen tongue [Unknown]
  - Syncope [Recovered/Resolved]
  - Asthenia [Unknown]
  - Anaemia [Recovering/Resolving]
  - Nervousness [Unknown]
  - Thyroid hormones increased [Not Recovered/Not Resolved]
  - Fall [Not Recovered/Not Resolved]
  - Fatigue [Not Recovered/Not Resolved]

NARRATIVE: CASE EVENT DATE: 20220914
